FAERS Safety Report 12161804 (Version 2)
Quarter: 2016Q1

REPORT INFORMATION
  Report Type: Spontaneous
  Country: US (occurrence: US)
  Receive Date: 20160309
  Receipt Date: 20160311
  Transmission Date: 20160526
  Serious: Yes (Disabling)
  Sender: FDA-Public Use
  Company Number: US-HORIZON-ACT-0047-2016

PATIENT
  Sex: Male

DRUGS (1)
  1. ACTIMMUNE [Suspect]
     Active Substance: INTERFERON GAMMA-1B
     Indication: MYCOSIS FUNGOIDES STAGE IV
     Dosage: 100 ?G TIW

REACTIONS (2)
  - Off label use [Unknown]
  - Retinal vein occlusion [Not Recovered/Not Resolved]
